FAERS Safety Report 6299147-7 (Version None)
Quarter: 2009Q3

REPORT INFORMATION
  Report Type: 
  Country: None (occurrence: None)
  Receive Date: 20090804
  Receipt Date: 20090724
  Transmission Date: 20100115
  Serious: Yes (Other)
  Sender: FDA-Public Use
  Company Number: GXKR2009AT08484

PATIENT
  Age: 79 Year
  Sex: Female
  Weight: 55 kg

DRUGS (3)
  1. BISOPROLOL FUMARATE [Suspect]
     Dosage: 5 MG/DAY
  2. THIAMAZOLE SANDOZ (NGX) (THIAMAZOLE) TABLET, 20MG [Suspect]
     Dosage: 20 MG, Q2W
  3. PANTOPRAZOLE (PANTOPRAZOLE) FILM-COATED TABLET, 40MG [Suspect]
     Dosage: 40 MG, Q48H

REACTIONS (3)
  - GAIT DISTURBANCE [None]
  - NEUROLOGICAL SYMPTOM [None]
  - POLYNEUROPATHY [None]
